FAERS Safety Report 16257135 (Version 2)
Quarter: 2022Q2

REPORT INFORMATION
  Report Type: Spontaneous
  Country: ES (occurrence: ES)
  Receive Date: 20190430
  Receipt Date: 20220405
  Transmission Date: 20220721
  Serious: Yes (Life-Threatening, Hospitalization, Other)
  Sender: FDA-Public Use
  Company Number: None

PATIENT
  Age: 73 Year
  Sex: Male

DRUGS (8)
  1. METHOTREXATE SODIUM [Interacting]
     Active Substance: METHOTREXATE SODIUM
     Indication: Hodgkin^s disease
     Dosage: 6 MG/M2, MONTHLY
     Route: 042
     Dates: start: 20181001, end: 20190221
  2. PREDNISONE [Interacting]
     Active Substance: PREDNISONE
     Indication: Hodgkin^s disease
     Dosage: 250 MG, MONTHLY
     Route: 048
     Dates: start: 20180917, end: 20190211
  3. BLEOMYCIN SULFATE [Interacting]
     Active Substance: BLEOMYCIN SULFATE
     Indication: Hodgkin^s disease
     Dosage: UNK UNK, MONTHLY
     Route: 042
     Dates: start: 20181001, end: 20190221
  4. CYCLOPHOSPHAMIDE [Interacting]
     Active Substance: CYCLOPHOSPHAMIDE
     Indication: Hodgkin^s disease
     Dosage: 500 MG/M2, MONTHLY
     Route: 042
     Dates: start: 20180917, end: 20190207
  5. PROCARBAZINE HYDROCHLORIDE [Interacting]
     Active Substance: PROCARBAZINE HYDROCHLORIDE
     Indication: Hodgkin^s disease
     Dosage: 750 MG/M2, MONTHLY
     Route: 048
     Dates: start: 20180917, end: 20190211
  6. ETOPOSIDE [Interacting]
     Active Substance: ETOPOSIDE
     Indication: Hodgkin^s disease
     Dosage: 547.5 MG, MONTHLY
     Route: 048
     Dates: start: 20181001, end: 20190225
  7. VINBLASTINE SULFATE [Interacting]
     Active Substance: VINBLASTINE SULFATE
     Indication: Hodgkin^s disease
     Dosage: 6 MG/KG, MONTHLY
     Route: 042
     Dates: start: 20180917, end: 20190207
  8. FILGRASTIM [Concomitant]
     Active Substance: FILGRASTIM
     Indication: Prophylaxis
     Dosage: 6 DF, MONTHLY
     Route: 058
     Dates: start: 20181018, end: 20190204

REACTIONS (3)
  - Drug interaction [Unknown]
  - Pneumocystis jirovecii pneumonia [Not Recovered/Not Resolved]
  - Agranulocytosis [Recovered/Resolved]

NARRATIVE: CASE EVENT DATE: 20190304
